FAERS Safety Report 13601650 (Version 1)
Quarter: 2017Q2

REPORT INFORMATION
  Report Type: Spontaneous
  Country: US (occurrence: US)
  Receive Date: 20170601
  Receipt Date: 20170601
  Transmission Date: 20170830
  Serious: No
  Sender: FDA-Public Use
  Company Number: US-BAUSCH-BL-2016-013885

PATIENT
  Age: 65 Year
  Sex: Female
  Weight: 56.3 kg

DRUGS (2)
  1. ELIDEL [Suspect]
     Active Substance: PIMECROLIMUS
     Indication: PRURITUS
  2. ELIDEL [Suspect]
     Active Substance: PIMECROLIMUS
     Indication: SKIN IRRITATION
     Route: 061
     Dates: start: 20160603, end: 20160603

REACTIONS (1)
  - Skin burning sensation [Recovered/Resolved]

NARRATIVE: CASE EVENT DATE: 20160603
